FAERS Safety Report 7534025-4 (Version None)
Quarter: 2011Q2

REPORT INFORMATION
  Report Type: 
  Country: None (occurrence: None)
  Receive Date: 20110608
  Receipt Date: 20060828
  Transmission Date: 20111010
  Serious: Yes (Hospitalization, Other)
  Sender: FDA-Public Use
  Company Number: PHHO2006JP13167

PATIENT
  Sex: Male

DRUGS (15)
  1. FAMOTIDINE [Concomitant]
     Indication: GASTRIC ULCER
  2. NORVASC [Concomitant]
     Indication: HYPERTENSION
  3. DIOVAN [Suspect]
     Indication: HYPERTENSION
     Dosage: 80 MG, QD
     Route: 048
     Dates: start: 20021118, end: 20030324
  4. DIOVAN [Suspect]
     Dosage: 160 MG, QD
     Route: 048
     Dates: start: 20030325
  5. FENOFIBRATE [Concomitant]
     Indication: HYPERLIPIDAEMIA
  6. LIPIDIL [Concomitant]
     Indication: HYPERLIPIDAEMIA
  7. ISOSORBIDE DINITRATE [Concomitant]
     Indication: ANGINA PECTORIS
  8. MEXITIL [Concomitant]
     Indication: ARRHYTHMIA
  9. LANIRAPID [Concomitant]
     Indication: CARDIAC FAILURE
  10. FRANDOL [Concomitant]
     Indication: ANGINA PECTORIS
  11. LASIX [Concomitant]
  12. SIGMART [Concomitant]
     Indication: ANGINA PECTORIS
  13. TICLOPIDINE HCL [Concomitant]
     Indication: ARTERIOSCLEROSIS OBLITERANS
  14. LUPRAC [Concomitant]
     Indication: CARDIAC FAILURE
  15. LANSOPRAZOLE [Concomitant]
     Indication: REFLUX OESOPHAGITIS

REACTIONS (8)
  - SPINAL OSTEOARTHRITIS [None]
  - CORONARY ARTERY STENOSIS [None]
  - ELECTROCARDIOGRAM ST SEGMENT DEPRESSION [None]
  - CORONARY ARTERY OCCLUSION [None]
  - ANGINA PECTORIS [None]
  - ELECTROCARDIOGRAM T WAVE INVERSION [None]
  - SPINAL LIGAMENT OSSIFICATION [None]
  - DYSPNOEA [None]
